FAERS Safety Report 19031056 (Version 1)
Quarter: 2021Q1

REPORT INFORMATION
  Report Type: Report from Study
  Country: US (occurrence: US)
  Receive Date: 20210319
  Receipt Date: 20210319
  Transmission Date: 20210420
  Serious: Yes (Hospitalization, Other)
  Sender: FDA-Public Use
  Company Number: US-BAYER-2021-014053

PATIENT
  Age: 51 Year
  Sex: Female
  Weight: 72.56 kg

DRUGS (4)
  1. LETAIRIS [Concomitant]
     Active Substance: AMBRISENTAN
     Dosage: UNK
  2. UPTRAVI [Concomitant]
     Active Substance: SELEXIPAG
  3. ADEMPAS [Suspect]
     Active Substance: RIOCIGUAT
     Indication: PULMONARY ARTERIAL HYPERTENSION
     Dosage: 1.0 MG, TID
     Route: 048
  4. ADEMPAS [Suspect]
     Active Substance: RIOCIGUAT
     Indication: PULMONARY ARTERIAL HYPERTENSION
     Dosage: UNK
     Route: 048
     Dates: start: 20190319

REACTIONS (10)
  - Hypotension [Unknown]
  - Epistaxis [Unknown]
  - Syncope [None]
  - Nausea [Not Recovered/Not Resolved]
  - Hypotension [Unknown]
  - Dizziness [Not Recovered/Not Resolved]
  - Epistaxis [None]
  - Hypotension [None]
  - Syncope [Unknown]
  - Feeling abnormal [None]

NARRATIVE: CASE EVENT DATE: 202012
